FAERS Safety Report 8191820-9 (Version None)
Quarter: 2012Q1

REPORT INFORMATION
  Report Type: 
  Country: None (occurrence: None)
  Receive Date: 20120307
  Receipt Date: 20120305
  Transmission Date: 20120608
  Serious: Yes (Hospitalization)
  Sender: FDA-Public Use
  Company Number: US-PFIZER INC-2012058495

PATIENT
  Sex: Male
  Weight: 89.3 kg

DRUGS (5)
  1. PROTONIX [Concomitant]
     Indication: GASTROOESOPHAGEAL REFLUX DISEASE
     Dosage: UNK
  2. LYRICA [Suspect]
     Indication: SPINAL COLUMN STENOSIS
  3. ACETYLSALICYLIC ACID [Concomitant]
     Indication: MYOCARDIAL INFARCTION
     Dosage: UNK
  4. LYRICA [Suspect]
     Indication: NEURALGIA
     Dosage: UNK
  5. NOVOLOG [Concomitant]
     Indication: DIABETES MELLITUS
     Dosage: UNKNOWN DOSE, FOUR TIMES A DAY

REACTIONS (1)
  - SPINAL DISORDER [None]
